FAERS Safety Report 15720237 (Version 3)
Quarter: 2019Q1

REPORT INFORMATION
  Report Type: Spontaneous
  Country: JP (occurrence: JP)
  Receive Date: 20181213
  Receipt Date: 20190124
  Transmission Date: 20190417
  Serious: Yes (Hospitalization)
  Sender: FDA-Public Use
  Company Number: PHJP2018JP020742

PATIENT
  Age: 89 Year
  Sex: Female
  Weight: 35 kg

DRUGS (5)
  1. DIQUAS [Suspect]
     Active Substance: DIQUAFOSOL TETRASODIUM
     Indication: DRY EYE
     Dosage: 1 GTT, 6QD
     Route: 047
     Dates: start: 20130823
  2. HYALURONATE SODIUM [Concomitant]
     Active Substance: HYALURONATE SODIUM
     Indication: CORNEAL DISORDER
     Dosage: 1 GTT, QH
     Route: 047
     Dates: start: 20150512
  3. GLANATEC [Suspect]
     Active Substance: RIPASUDIL HYDROCHLORIDE DIHYDRATE
     Indication: NORMAL TENSION GLAUCOMA
     Dosage: 1 GTT, BID
     Route: 047
     Dates: start: 20160727
  4. TRAVATAN Z [Suspect]
     Active Substance: TRAVOPROST
     Dosage: 1 GTT, QD
     Route: 047
  5. TRAVATAN Z [Suspect]
     Active Substance: TRAVOPROST
     Indication: NORMAL TENSION GLAUCOMA
     Dosage: 1 GTT, QD
     Route: 047
     Dates: start: 20130829

REACTIONS (1)
  - Inguinal hernia [Recovered/Resolved]

NARRATIVE: CASE EVENT DATE: 201812
